FAERS Safety Report 4443826-0 (Version None)
Quarter: 2004Q3

REPORT INFORMATION
  Report Type: 
  Country: None (occurrence: None)
  Receive Date: 20040729
  Receipt Date: 20040326
  Transmission Date: 20050211
  Serious: Yes (Other)
  Sender: FDA-Public Use
  Company Number: US-JNJFOC-20040306569

PATIENT
  Age: 18 Year
  Sex: Male

DRUGS (8)
  1. RISPERDAL [Suspect]
     Indication: AUTISM
     Dosage: 0.5 MG, 2 IN 1 DAY, ORAL;  0.5 MG, 3 IN 1 DAY, ORAL
     Route: 048
     Dates: start: 20030501, end: 20031201
  2. RISPERDAL [Suspect]
     Indication: AUTISM
     Dosage: 0.5 MG, 2 IN 1 DAY, ORAL;  0.5 MG, 3 IN 1 DAY, ORAL
     Route: 048
     Dates: start: 20031201
  3. ADDERALL [Concomitant]
  4. ADDERALL (OBETROL) [Concomitant]
  5. ALLEGRA [Concomitant]
  6. EFFEXOR [Concomitant]
  7. BUSPAR [Concomitant]
  8. TOPORAL XL (METOPROLOL SUCCINATE) [Concomitant]

REACTIONS (2)
  - DISTURBANCE IN ATTENTION [None]
  - WEIGHT INCREASED [None]
